FAERS Safety Report 5412971-5 (Version None)
Quarter: 2007Q3

REPORT INFORMATION
  Report Type: 
  Country: None (occurrence: None)
  Receive Date: 20070809
  Receipt Date: 20070731
  Transmission Date: 20080115
  Serious: Yes (Hospitalization)
  Sender: FDA-Public Use
  Company Number: GXKR2007GB06553

PATIENT
  Age: 73 Year
  Sex: Male
  Weight: 76.7 kg

DRUGS (2)
  1. SIMVASTATIN [Suspect]
     Indication: HYPERCHOLESTEROLAEMIA
     Dosage: 40 MG, ORAL
     Route: 048
     Dates: start: 20050101
  2. ACETYLSALICYLIC ACID SRT [Concomitant]

REACTIONS (1)
  - LOSS OF CONSCIOUSNESS [None]
